FAERS Safety Report 6142761-X (Version None)
Quarter: 2009Q2

REPORT INFORMATION
  Report Type: 
  Country: None (occurrence: None)
  Receive Date: 20090402
  Receipt Date: 20090402
  Transmission Date: 20091009
  Serious: Yes (Hospitalization)
  Sender: FDA-Public Use
  Company Number: None

PATIENT
  Age: 54 Year
  Sex: Male
  Weight: 110.5 kg

DRUGS (1)
  1. PREDNISONE TAB [Suspect]
     Indication: GOUT
     Dosage: 30 MG EVERY DAY PO
     Route: 048
     Dates: start: 20090130, end: 20090206

REACTIONS (2)
  - HYPERGLYCAEMIA [None]
  - VISION BLURRED [None]
